FAERS Safety Report 22594060 (Version 1)
Quarter: 2023Q2

REPORT INFORMATION
  Report Type: Spontaneous
  Country: US (occurrence: US)
  Receive Date: 20230613
  Receipt Date: 20230613
  Transmission Date: 20230722
  Serious: Yes (Other)
  Sender: FDA-Public Use
  Company Number: US-BRISTOL-MYERS SQUIBB COMPANY-2023-072746

PATIENT
  Age: 51 Year
  Sex: Female

DRUGS (4)
  1. TRIAMCINOLONE ACETONIDE [Suspect]
     Active Substance: TRIAMCINOLONE ACETONIDE
     Indication: Exudative retinopathy
     Route: 031
  2. DEXAMETHASONE [Suspect]
     Active Substance: DEXAMETHASONE
     Indication: Exudative retinopathy
     Dosage: INTRAVITREAL
     Route: 031
  3. BEVACIZUMAB [Suspect]
     Active Substance: BEVACIZUMAB
     Indication: Exudative retinopathy
     Route: 031
  4. PREDNISONE [Suspect]
     Active Substance: PREDNISONE
     Indication: Exudative retinopathy
     Route: 048

REACTIONS (2)
  - Ocular hypertension [Recovered/Resolved]
  - Off label use [Unknown]
